FAERS Safety Report 20745760 (Version 1)
Quarter: 2022Q2

REPORT INFORMATION
  Report Type: Spontaneous
  Country: US (occurrence: None)
  Receive Date: 20220425
  Receipt Date: 20220425
  Transmission Date: 20220721
  Serious: Yes (Hospitalization)
  Sender: FDA-Public Use
  Company Number: None

PATIENT
  Age: 87 Year
  Sex: Female

DRUGS (4)
  1. TOBRAMYCIN [Suspect]
     Active Substance: TOBRAMYCIN
     Indication: Bronchiectasis
     Dosage: OTHER QUANTITY : 300 MG/5ML;?FREQUENCY : AS DIRECTED;?INHALE 1 AMPULE VIA NEBULIZER TWICE DAILY FOR
     Route: 055
     Dates: start: 20160114
  2. ALBUTEROL [Concomitant]
     Active Substance: ALBUTEROL
  3. LEVAQUIN [Concomitant]
     Active Substance: LEVOFLOXACIN
  4. PARI LC PLUS NEBULIZER [Concomitant]

REACTIONS (2)
  - Chronic obstructive pulmonary disease [None]
  - Oxygen saturation decreased [None]

NARRATIVE: CASE EVENT DATE: 20220419
